FAERS Safety Report 7627440-1 (Version None)
Quarter: 2011Q3

REPORT INFORMATION
  Report Type: 
  Country: None (occurrence: None)
  Receive Date: 20110721
  Receipt Date: 20110712
  Transmission Date: 20111222
  Serious: Yes (Other)
  Sender: FDA-Public Use
  Company Number: US-NAPPMUNDI-USA-2011-0065418

PATIENT
  Sex: Male

DRUGS (1)
  1. BUTRANS [Suspect]
     Indication: BACK PAIN
     Dosage: 10 MCG/HR, WEEKLY
     Route: 062
     Dates: start: 20110302, end: 20110303

REACTIONS (6)
  - NIGHTMARE [None]
  - PANIC ATTACK [None]
  - FLASHBACK [None]
  - ANXIETY [None]
  - HYPERHIDROSIS [None]
  - HEADACHE [None]
